FAERS Safety Report 20419360 (Version 2)
Quarter: 2022Q2

REPORT INFORMATION
  Report Type: Report from Study
  Country: PA (occurrence: None)
  Receive Date: 20220203
  Receipt Date: 20220420
  Transmission Date: 20220721
  Serious: Yes (Other)
  Sender: FDA-Public Use
  Company Number: PA-Merck Healthcare KGaA-9297046

PATIENT
  Age: 25 Year
  Sex: Female

DRUGS (1)
  1. REBIF [Suspect]
     Active Substance: INTERFERON BETA-1A
     Indication: Multiple sclerosis
     Route: 058
     Dates: start: 20160629

REACTIONS (2)
  - Syncope [Recovered/Resolved]
  - Haemoglobin decreased [Recovered/Resolved]

NARRATIVE: CASE EVENT DATE: 20210901
